FAERS Safety Report 7776531-3 (Version None)
Quarter: 2011Q3

REPORT INFORMATION
  Report Type: 
  Country: None (occurrence: None)
  Receive Date: 20110922
  Receipt Date: 20110908
  Transmission Date: 20111222
  Serious: Yes (Hospitalization, Disabling, Other)
  Sender: FDA-Public Use
  Company Number: 2010SP041972

PATIENT
  Age: 30 Year
  Sex: Female
  Weight: 62.1428 kg

DRUGS (1)
  1. NUVARING [Suspect]
     Indication: CONTRACEPTION
     Dates: start: 20060101, end: 20070101

REACTIONS (21)
  - EXCESSIVE EXERCISE [None]
  - POSTPARTUM DISORDER [None]
  - ACUTE SINUSITIS [None]
  - PREMATURE DELIVERY [None]
  - INTERNATIONAL NORMALISED RATIO INCREASED [None]
  - DIZZINESS [None]
  - PERIPHERAL EMBOLISM [None]
  - DEPRESSION [None]
  - AFFECTIVE DISORDER [None]
  - PULMONARY EMBOLISM [None]
  - ABDOMINAL PAIN [None]
  - VERTIGO [None]
  - POST-TRAUMATIC STRESS DISORDER [None]
  - PREGNANCY [None]
  - HYPERCOAGULATION [None]
  - PALPITATIONS [None]
  - PULMONARY INFARCTION [None]
  - COSTOCHONDRITIS [None]
  - JOINT DISLOCATION [None]
  - EPISTAXIS [None]
  - HAEMORRHOIDS [None]
